FAERS Safety Report 13706545 (Version 1)
Quarter: 2017Q2

REPORT INFORMATION
  Report Type: Spontaneous
  Country: US (occurrence: US)
  Receive Date: 20170630
  Receipt Date: 20170630
  Transmission Date: 20170830
  Serious: No
  Sender: FDA-Public Use
  Company Number: US-JNJFOC-20161113807

PATIENT
  Sex: Male

DRUGS (2)
  1. TROMETHAMINE. [Concomitant]
     Active Substance: TROMETHAMINE
     Route: 065
     Dates: end: 20070216
  2. METHYLPHENIDATE HYDROCHLORIDE. [Suspect]
     Active Substance: METHYLPHENIDATE HYDROCHLORIDE
     Indication: PRODUCT USED FOR UNKNOWN INDICATION
     Route: 065
     Dates: end: 20060420

REACTIONS (1)
  - Agitation [Unknown]
